FAERS Safety Report 5424968-X (Version None)
Quarter: 2007Q3

REPORT INFORMATION
  Report Type: 
  Country: None (occurrence: None)
  Receive Date: 20070824
  Receipt Date: 20070820
  Transmission Date: 20080115
  Serious: Yes (Hospitalization)
  Sender: FDA-Public Use
  Company Number: B0478792A

PATIENT
  Age: 34 Year
  Sex: Female

DRUGS (2)
  1. FLOLAN [Suspect]
     Indication: PULMONARY HYPERTENSION
     Route: 042
     Dates: start: 20030614
  2. MERCAZOLE [Concomitant]
     Route: 065

REACTIONS (4)
  - BASEDOW'S DISEASE [None]
  - DYSPNOEA EXERTIONAL [None]
  - HYPERTHYROIDISM [None]
  - RIGHT VENTRICULAR FAILURE [None]
